FAERS Safety Report 13500142 (Version 1)
Quarter: 2017Q2

REPORT INFORMATION
  Report Type: Spontaneous
  Country: US (occurrence: US)
  Receive Date: 20170501
  Receipt Date: 20170501
  Transmission Date: 20170830
  Serious: Yes (Other)
  Sender: FDA-Public Use
  Company Number: None

PATIENT
  Age: 71 Year
  Sex: Male
  Weight: 96.75 kg

DRUGS (1)
  1. VALSARTAN AND HYDROCHLOROTHIAZIDE [Suspect]
     Active Substance: HYDROCHLOROTHIAZIDE\VALSARTAN
     Indication: HYPERTENSION
     Dosage: ?          QUANTITY:1 TABLET(S);OTHER ROUTE:0RAL?
     Dates: start: 20170111, end: 20170411

REACTIONS (2)
  - Headache [None]
  - Malaise [None]

NARRATIVE: CASE EVENT DATE: 20170211
